FAERS Safety Report 19134685 (Version 6)
Quarter: 2021Q3

REPORT INFORMATION
  Report Type: Spontaneous
  Country: US (occurrence: US)
  Receive Date: 20210414
  Receipt Date: 20210817
  Transmission Date: 20211014
  Serious: Yes (Hospitalization, Other)
  Sender: FDA-Public Use
  Company Number: US-SA-2021SA114000

PATIENT
  Age: 77 Year
  Sex: Male

DRUGS (4)
  1. CAPRELSA [Suspect]
     Active Substance: VANDETANIB
     Indication: THYROID CANCER
     Dosage: 200 MG QD
     Route: 048
     Dates: start: 20201121
  2. CAPRELSA [Suspect]
     Active Substance: VANDETANIB
     Dosage: 300 MG, BID
     Route: 065
     Dates: start: 20201121
  3. CORTISONE [Concomitant]
     Active Substance: CORTISONE
     Dosage: BID
     Route: 065
  4. CAPRELSA [Suspect]
     Active Substance: VANDETANIB
     Dosage: 300 MG, QD
     Route: 048
     Dates: start: 20201121, end: 20210809

REACTIONS (5)
  - Pneumonia [Unknown]
  - Product dose omission issue [Unknown]
  - Pain [Unknown]
  - Drug ineffective [Unknown]
  - Rash [Unknown]
